FAERS Safety Report 25712009 (Version 1)
Quarter: 2025Q3

REPORT INFORMATION
  Report Type: Spontaneous
  Country: CN (occurrence: CN)
  Receive Date: 20250821
  Receipt Date: 20250821
  Transmission Date: 20251020
  Serious: Yes (Other)
  Sender: PFIZER
  Company Number: CN-PFIZER INC-PV202500100555

PATIENT
  Age: 54 Year
  Sex: Male
  Weight: 93.5 kg

DRUGS (4)
  1. TYGACIL [Suspect]
     Active Substance: TIGECYCLINE
     Indication: Pneumonia legionella
     Dosage: 200 MG, 1X/DAY
     Route: 041
     Dates: start: 20250729, end: 20250729
  2. TYGACIL [Suspect]
     Active Substance: TIGECYCLINE
     Dosage: 100 MG, 2X/DAY
     Route: 041
     Dates: start: 20250729, end: 20250806
  3. DEXTROSE [Concomitant]
     Active Substance: DEXTROSE MONOHYDRATE
     Indication: Vehicle solution use
     Dosage: 250 ML, 1X/DAY
     Route: 041
     Dates: start: 20250729, end: 20250729
  4. DEXTROSE [Concomitant]
     Active Substance: DEXTROSE MONOHYDRATE
     Dosage: 100 ML, 2X/DAY
     Route: 041
     Dates: start: 20250729, end: 20250806

REACTIONS (4)
  - Liver injury [Recovering/Resolving]
  - Pancreatic disorder [Recovering/Resolving]
  - Pancreatic injury [Recovering/Resolving]
  - Off label use [Unknown]

NARRATIVE: CASE EVENT DATE: 20250729
